FAERS Safety Report 4763404-3 (Version None)
Quarter: 2005Q3

REPORT INFORMATION
  Report Type: 
  Country: None (occurrence: None)
  Receive Date: 20050902
  Receipt Date: 20050818
  Transmission Date: 20060218
  Serious: No
  Sender: FDA-Public Use
  Company Number: US015855

PATIENT
  Age: 24 Month
  Sex: Male

DRUGS (1)
  1. ACTIQ [Suspect]
     Dosage: 400 UG ONCE, BUCCAL
     Route: 002
     Dates: start: 20050818, end: 20050818

REACTIONS (2)
  - ACCIDENTAL DRUG INTAKE BY CHILD [None]
  - SOMNOLENCE [None]
